FAERS Safety Report 8587715-9 (Version None)
Quarter: 2012Q3

REPORT INFORMATION
  Report Type: 
  Country: None (occurrence: None)
  Receive Date: 20120813
  Receipt Date: 20120730
  Transmission Date: 20120928
  Serious: No
  Sender: FDA-Public Use
  Company Number: US-009507513-1207JPN010140

PATIENT

DRUGS (2)
  1. JANUVIA [Suspect]
     Dosage: 50 MG, QD
     Route: 048
  2. CADUET [Suspect]
     Route: 048

REACTIONS (1)
  - NO ADVERSE EVENT [None]
